FAERS Safety Report 6370152 (Version 1)
Quarter: 2020Q3

REPORT INFORMATION
  Report Type: Report from Study
  Country: DE (occurrence: DE)
  Receive Date: 20070730
  Receipt Date: 20070730
  Transmission Date: 20201104
  Serious: Yes (Other)
  Sender: FDA-Public Use
  Company Number: DE-ROCHE-507874

PATIENT
  Age: 57 Year
  Sex: Female

DRUGS (1)
  1. IBANDRONIC ACID. [Suspect]
     Active Substance: IBANDRONIC ACID
     Indication: OSTEOPOROSIS POSTMENOPAUSAL
     Dosage: DRUG NAME REPORTED AS BONVIVA 150 MG FILMTABLETTEN.
     Route: 065
     Dates: start: 20061026, end: 20061026

REACTIONS (2)
  - Mobility decreased [Recovered/Resolved]
  - Nausea [Recovered/Resolved]

NARRATIVE: CASE EVENT DATE: 20061026
